FAERS Safety Report 9916847 (Version 1)
Quarter: 2014Q1

REPORT INFORMATION
  Report Type: Spontaneous
  Country: US (occurrence: US)
  Receive Date: 20140221
  Receipt Date: 20140221
  Transmission Date: 20141002
  Serious: Yes (Other)
  Sender: FDA-Public Use
  Company Number: US-ACTAVIS-2014-02869

PATIENT
  Sex: Male
  Weight: 68 kg

DRUGS (2)
  1. RISPERIDONE (WATSON LABORATORIES) [Suspect]
     Indication: MENTAL DISORDER
     Dosage: 2 DF, BID
     Route: 048
  2. RISPERIDONE [Suspect]
     Indication: MENTAL DISORDER
     Dosage: THREE INJECTIONS
     Route: 065
     Dates: start: 2011

REACTIONS (3)
  - Hepatic cancer stage IV [Not Recovered/Not Resolved]
  - Gynaecomastia [Recovered/Resolved]
  - Breast pain [Recovered/Resolved]
